FAERS Safety Report 7539686-1 (Version None)
Quarter: 2011Q2

REPORT INFORMATION
  Report Type: 
  Country: None (occurrence: None)
  Receive Date: 20110610
  Receipt Date: 20110606
  Transmission Date: 20111010
  Serious: Yes (Death, Hospitalization, Other)
  Sender: FDA-Public Use
  Company Number: BR-ABBOTT-09P-020-0609616-00

PATIENT
  Sex: Female
  Weight: 71 kg

DRUGS (6)
  1. ACETAMINOPHEN [Concomitant]
     Indication: PAIN
  2. METHOTREXATE [Concomitant]
     Indication: PRODUCT USED FOR UNKNOWN INDICATION
  3. AMBROXOL HYDROCHLORIDE [Concomitant]
     Indication: PAIN
     Dosage: 1-2 DAILY
  4. LOXOPROFEN SODIUM [Concomitant]
     Indication: RHEUMATOID ARTHRITIS
     Route: 048
     Dates: start: 20060101, end: 20090911
  5. HUMIRA [Suspect]
     Indication: RHEUMATOID ARTHRITIS
     Dosage: 1 INJECTION
     Route: 058
     Dates: start: 20090801, end: 20090911
  6. LOXOPROFEN SODIUM [Concomitant]
     Route: 048

REACTIONS (22)
  - LUNG NEOPLASM MALIGNANT [None]
  - FATIGUE [None]
  - DRUG INEFFECTIVE [None]
  - ORAL INFECTION [None]
  - ARTHRALGIA [None]
  - METASTASIS [None]
  - BLOOD PRESSURE FLUCTUATION [None]
  - ASTHENIA [None]
  - PYREXIA [None]
  - GINGIVAL INFECTION [None]
  - INFLUENZA [None]
  - RHEUMATOID ARTHRITIS [None]
  - NECK MASS [None]
  - DIARRHOEA [None]
  - HYPERHIDROSIS [None]
  - CONSTIPATION [None]
  - LIP AND/OR ORAL CAVITY CANCER [None]
  - COUGH [None]
  - THROMBOSIS [None]
  - PULMONARY EMBOLISM [None]
  - APHTHOUS STOMATITIS [None]
  - DYSPNOEA [None]
